FAERS Safety Report 5409439-9 (Version None)
Quarter: 2007Q3

REPORT INFORMATION
  Report Type: 
  Country: None (occurrence: None)
  Receive Date: 20070807
  Receipt Date: 20070725
  Transmission Date: 20080115
  Serious: Yes (Other)
  Sender: FDA-Public Use
  Company Number: SPV1-2007-03586

PATIENT
  Age: 39 Year
  Sex: Female

DRUGS (2)
  1. ADDERALL 10 [Suspect]
     Indication: ATTENTION DEFICIT/HYPERACTIVITY DISORDER
     Dosage: 30 MG, 1X/DAY;QD AM, ORAL
     Route: 048
     Dates: end: 20070622
  2. ZOLOFT /010114022/ (SERTRALINE HYDROCHLORIDE) [Concomitant]

REACTIONS (2)
  - BENIGN INTRACRANIAL HYPERTENSION [None]
  - VISUAL DISTURBANCE [None]
